FAERS Safety Report 25453791 (Version 1)
Quarter: 2025Q2

REPORT INFORMATION
  Report Type: Spontaneous
  Country: US (occurrence: US)
  Receive Date: 20250619
  Receipt Date: 20250619
  Transmission Date: 20250716
  Serious: No
  Sender: ELI LILLY AND COMPANY
  Company Number: US-ELI_LILLY_AND_COMPANY-US202506011542

PATIENT
  Age: 83 Year
  Sex: Female

DRUGS (1)
  1. ZEPBOUND [Interacting]
     Active Substance: TIRZEPATIDE
     Indication: Weight control
     Route: 058
     Dates: start: 20250501

REACTIONS (3)
  - Weight increased [Unknown]
  - Drug interaction [Unknown]
  - Abdominal distension [Unknown]
